FAERS Safety Report 15949303 (Version 2)
Quarter: 2019Q1

REPORT INFORMATION
  Report Type: Report from Study
  Country: GB (occurrence: GB)
  Receive Date: 20190212
  Receipt Date: 20190227
  Transmission Date: 20190417
  Serious: Yes (Death, Life-Threatening, Hospitalization, Other)
  Sender: FDA-Public Use
  Company Number: GB-AUROBINDO-08-AUR-03014

PATIENT

DRUGS (1)
  1. PARACETAMOL 500 MG SOLUBLE TABLETS (GSL) [Suspect]
     Active Substance: ACETAMINOPHEN
     Indication: PRODUCT USED FOR UNKNOWN INDICATION
     Dosage: 16 TO 22 GRAMS
     Route: 048

REACTIONS (4)
  - Traumatic lung injury [Fatal]
  - Acute hepatic failure [Fatal]
  - Cardiac failure [Fatal]
  - Overdose [Fatal]
